FAERS Safety Report 16148268 (Version 1)
Quarter: 2019Q2

REPORT INFORMATION
  Report Type: Spontaneous
  Country: US (occurrence: US)
  Receive Date: 20190402
  Receipt Date: 20190402
  Transmission Date: 20190711
  Serious: No
  Sender: FDA-Public Use
  Company Number: US-009507513-1903USA009237

PATIENT
  Age: 62 Year
  Sex: Male

DRUGS (4)
  1. KEYTRUDA [Suspect]
     Active Substance: PEMBROLIZUMAB
     Indication: HEPATIC CANCER
     Dosage: 200 MILLIGRAM, EVERY 2 WEEKS
     Route: 042
     Dates: start: 201812
  2. ALLOPURINOL. [Concomitant]
     Active Substance: ALLOPURINOL
  3. CAPTOPRIL. [Concomitant]
     Active Substance: CAPTOPRIL
  4. TRULICITY [Concomitant]
     Active Substance: DULAGLUTIDE

REACTIONS (4)
  - Confusional state [Not Recovered/Not Resolved]
  - Arthralgia [Not Recovered/Not Resolved]
  - Product use in unapproved indication [Unknown]
  - Inappropriate schedule of product administration [Unknown]

NARRATIVE: CASE EVENT DATE: 201812
